FAERS Safety Report 15976116 (Version 2)
Quarter: 2019Q1

REPORT INFORMATION
  Report Type: Spontaneous
  Country: AR (occurrence: AR)
  Receive Date: 20190218
  Receipt Date: 20190222
  Transmission Date: 20190418
  Serious: Yes (Other)
  Sender: FDA-Public Use
  Company Number: AR-009507513-1902ARG005067

PATIENT
  Sex: Female

DRUGS (2)
  1. KEYTRUDA [Suspect]
     Active Substance: PEMBROLIZUMAB
     Indication: NON-SMALL CELL LUNG CANCER
     Dosage: UNK, CYCLICAL
     Route: 042
     Dates: start: 2017
  2. KEYTRUDA [Suspect]
     Active Substance: PEMBROLIZUMAB
     Dosage: UNK, CYCLICAL
     Route: 042
     Dates: start: 20190204

REACTIONS (8)
  - Malignant neoplasm progression [Unknown]
  - Hemiparesis [Recovered/Resolved]
  - Hypertension [Recovered/Resolved]
  - Product supply issue [Unknown]
  - Product dose omission [Unknown]
  - Nervousness [Unknown]
  - Transient ischaemic attack [Unknown]
  - Hypotension [Unknown]

NARRATIVE: CASE EVENT DATE: 201902
